FAERS Safety Report 20445639 (Version 1)
Quarter: 2022Q1

REPORT INFORMATION
  Report Type: Spontaneous
  Country: US (occurrence: None)
  Receive Date: 20220208
  Receipt Date: 20220208
  Transmission Date: 20220423
  Serious: Yes (Hospitalization)
  Sender: FDA-Public Use
  Company Number: None

PATIENT
  Age: 71 Year
  Sex: Female
  Weight: 56.52 kg

DRUGS (1)
  1. IBRANCE [Suspect]
     Active Substance: PALBOCICLIB
     Indication: Brain neoplasm
     Dosage: FREQUENCY : DAILY;?
     Route: 048
     Dates: start: 20220127, end: 20220207

REACTIONS (1)
  - Seizure [None]

NARRATIVE: CASE EVENT DATE: 20220207
